FAERS Safety Report 5474016-0 (Version None)
Quarter: 2007Q4

REPORT INFORMATION
  Report Type: 
  Country: None (occurrence: None)
  Receive Date: 20071002
  Receipt Date: 20070926
  Transmission Date: 20080405
  Serious: Yes (Death, Other)
  Sender: FDA-Public Use
  Company Number: PHBS2007JP15532

PATIENT
  Age: 62 Year
  Sex: Female

DRUGS (1)
  1. IMATINIB [Suspect]
     Indication: METASTASES TO LYMPH NODES
     Dosage: UNK, UNK
     Route: 065

REACTIONS (4)
  - CONDITION AGGRAVATED [None]
  - DEATH [None]
  - METASTASES TO BONE [None]
  - NAUSEA [None]
